FAERS Safety Report 5915903-6 (Version None)
Quarter: 2008Q4

REPORT INFORMATION
  Report Type: 
  Country: None (occurrence: None)
  Receive Date: 20081010
  Receipt Date: 20080930
  Transmission Date: 20090506
  Serious: Yes (Disabling)
  Sender: FDA-Public Use
  Company Number: JP-PFIZER INC-2008082931

PATIENT
  Age: 70 Year
  Sex: Male

DRUGS (1)
  1. ZITHROMAX [Suspect]
     Dosage: DAILY DOSE:500MG
     Route: 048
     Dates: start: 20071226, end: 20071228

REACTIONS (2)
  - DYSGEUSIA [None]
  - PAROSMIA [None]
